FAERS Safety Report 7578481-4 (Version None)
Quarter: 2011Q2

REPORT INFORMATION
  Report Type: 
  Country: None (occurrence: None)
  Receive Date: 20110628
  Receipt Date: 20110621
  Transmission Date: 20111010
  Serious: Yes (Hospitalization, Other)
  Sender: FDA-Public Use
  Company Number: US-MERCK-1105USA02543

PATIENT
  Age: 72 Year
  Sex: Male

DRUGS (3)
  1. COUMADIN [Concomitant]
     Indication: PULMONARY EMBOLISM
     Route: 065
  2. FOSAMAX [Suspect]
     Indication: OSTEOPOROSIS
     Route: 048
     Dates: start: 19970604, end: 20060503
  3. LOVENOX [Concomitant]
     Indication: PULMONARY EMBOLISM
     Route: 065

REACTIONS (18)
  - INJURY [None]
  - BONE LOSS [None]
  - PERIODONTITIS [None]
  - DRY MOUTH [None]
  - ANXIETY [None]
  - SPINAL DISORDER [None]
  - ORAL CANDIDIASIS [None]
  - DENTAL CARIES [None]
  - BLOOD DISORDER [None]
  - FEMUR FRACTURE [None]
  - ANAEMIA [None]
  - OSTEONECROSIS OF JAW [None]
  - TOOTH FRACTURE [None]
  - LACERATION [None]
  - PULMONARY CONGESTION [None]
  - FALL [None]
  - TOOTH DISORDER [None]
  - BALANCE DISORDER [None]
